FAERS Safety Report 9804279 (Version 2)
Quarter: 2014Q1

REPORT INFORMATION
  Report Type: Spontaneous
  Country: US (occurrence: US)
  Receive Date: 20140108
  Receipt Date: 20140108
  Transmission Date: 20141002
  Serious: Yes (Death, Hospitalization, Other)
  Sender: FDA-Public Use
  Company Number: US-PFIZER INC-2014003248

PATIENT
  Age: 32 Year
  Sex: Female

DRUGS (2)
  1. DILANTIN-125 [Suspect]
     Indication: MYOCLONUS
     Dosage: 300 MG, DAILY
     Dates: start: 198107
  2. TEGRETOL [Suspect]
     Indication: MYOCLONUS
     Dosage: 600 MG, DAILY

REACTIONS (12)
  - Allergic myocarditis [Fatal]
  - Hypotension [Fatal]
  - Ventricular tachycardia [Fatal]
  - Dermatitis exfoliative [Unknown]
  - Drug hypersensitivity [Not Recovered/Not Resolved]
  - Eosinophilia [Unknown]
  - Drug-induced liver injury [Recovered/Resolved]
  - Pyrexia [Unknown]
  - Rash vesicular [Not Recovered/Not Resolved]
  - Hypersensitivity vasculitis [Recovered/Resolved]
  - Urticaria [Unknown]
  - Pruritus [Not Recovered/Not Resolved]
